FAERS Safety Report 22075601 (Version 1)
Quarter: 2023Q1

REPORT INFORMATION
  Report Type: Spontaneous
  Country: CA (occurrence: CA)
  Receive Date: 20230308
  Receipt Date: 20230308
  Transmission Date: 20230418
  Serious: Yes (Other)
  Sender: FDA-Public Use
  Company Number: CA-ALLERGAN-2307438US

PATIENT
  Sex: Female

DRUGS (3)
  1. ALPHAGAN P [Suspect]
     Active Substance: BRIMONIDINE TARTRATE
     Indication: Glaucoma
     Dosage: 1 GTT, BID
     Route: 047
  2. COSOPT [Concomitant]
     Active Substance: DORZOLAMIDE HYDROCHLORIDE\TIMOLOL MALEATE
     Route: 047
  3. VISTITAN [Concomitant]
     Route: 047

REACTIONS (2)
  - Abnormal sensation in eye [Recovered/Resolved]
  - Eye pain [Recovered/Resolved]
